FAERS Safety Report 6272368-5 (Version None)
Quarter: 2009Q3

REPORT INFORMATION
  Report Type: 
  Country: None (occurrence: None)
  Receive Date: 20090715
  Receipt Date: 20090707
  Transmission Date: 20100115
  Serious: Yes (Hospitalization, Other)
  Sender: FDA-Public Use
  Company Number: 236805K09USA

PATIENT
  Age: 60 Year
  Sex: Female

DRUGS (5)
  1. REBIF [Suspect]
     Indication: MULTIPLE SCLEROSIS
     Dates: start: 20020909, end: 20081001
  2. FOSAMAX [Concomitant]
  3. FEMARA [Concomitant]
  4. AMLODIPINE (AMLODIPINE) [Concomitant]
  5. HYZAAR [Concomitant]

REACTIONS (1)
  - BREAST CANCER RECURRENT [None]
